FAERS Safety Report 11095975 (Version 2)
Quarter: 2015Q2

REPORT INFORMATION
  Report Type: Spontaneous
  Country: US (occurrence: US)
  Receive Date: 20150507
  Receipt Date: 20150526
  Transmission Date: 20150821
  Serious: No
  Sender: FDA-Public Use
  Company Number: US-009507513-1505USA001867

PATIENT
  Age: 15 Year
  Sex: Female
  Weight: 58.5 kg

DRUGS (1)
  1. NEXPLANON [Suspect]
     Active Substance: ETONOGESTREL
     Dosage: 1 ROD, ONCE EVERY THREE YEARS
     Route: 059
     Dates: start: 201403

REACTIONS (3)
  - Haemorrhage [Unknown]
  - No adverse event [Unknown]
  - Device breakage [Unknown]
